FAERS Safety Report 15692952 (Version 1)
Quarter: 2018Q4

REPORT INFORMATION
  Report Type: Spontaneous
  Country: US (occurrence: US)
  Receive Date: 20181206
  Receipt Date: 20181206
  Transmission Date: 20190205
  Serious: No
  Sender: FDA-Public Use
  Company Number: US-HIKMA PHARMACEUTICALS USA INC.-US-H14001-18-06998

PATIENT
  Age: 66 Year
  Sex: Female

DRUGS (4)
  1. CLARITIN [Suspect]
     Active Substance: LORATADINE
     Indication: EUSTACHIAN TUBE OBSTRUCTION
     Route: 048
     Dates: start: 201807
  2. ASPIRIN. [Suspect]
     Active Substance: ASPIRIN
     Indication: EUSTACHIAN TUBE OBSTRUCTION
     Route: 048
     Dates: start: 201807
  3. FLONASE [Suspect]
     Active Substance: FLUTICASONE PROPIONATE
     Indication: EUSTACHIAN TUBE OBSTRUCTION
     Route: 045
     Dates: start: 201807
  4. FLUTICASONE PROPIONATE. [Suspect]
     Active Substance: FLUTICASONE PROPIONATE
     Indication: EUSTACHIAN TUBE OBSTRUCTION
     Route: 045
     Dates: start: 201807

REACTIONS (4)
  - Accidental exposure to product [Unknown]
  - Visual impairment [Recovered/Resolved]
  - Feeling abnormal [Not Recovered/Not Resolved]
  - Off label use [Unknown]

NARRATIVE: CASE EVENT DATE: 201807
